FAERS Safety Report 13754504 (Version 4)
Quarter: 2017Q3

REPORT INFORMATION
  Report Type: Spontaneous
  Country: JP (occurrence: JP)
  Receive Date: 20170714
  Receipt Date: 20170831
  Transmission Date: 20171127
  Serious: Yes (Other)
  Sender: FDA-Public Use
  Company Number: JP-UCBSA-2017027431

PATIENT
  Age: 89 Year
  Sex: Female

DRUGS (4)
  1. ALEVIATIN [Concomitant]
     Active Substance: PHENYTOIN SODIUM
     Indication: PRODUCT USED FOR UNKNOWN INDICATION
  2. E KEPPRA [Suspect]
     Active Substance: LEVETIRACETAM
     Dosage: 3000 MG, DAILY
     Route: 041
     Dates: start: 201707, end: 20170713
  3. TEGRETOL [Concomitant]
     Active Substance: CARBAMAZEPINE
     Indication: PRODUCT USED FOR UNKNOWN INDICATION
     Dosage: 250 MG, ONCE DAILY (QD)
     Dates: start: 20170707, end: 20170711
  4. E KEPPRA [Suspect]
     Active Substance: LEVETIRACETAM
     Indication: EPILEPSY
     Dosage: 1000 MG, DAILY
     Route: 041
     Dates: start: 20170702, end: 201707

REACTIONS (1)
  - Stupor [Recovering/Resolving]

NARRATIVE: CASE EVENT DATE: 201707
